FAERS Safety Report 9764208 (Version 1)
Quarter: 2013Q4

REPORT INFORMATION
  Report Type: Spontaneous
  Country: US (occurrence: US)
  Receive Date: 20131216
  Receipt Date: 20131216
  Transmission Date: 20140711
  Serious: No
  Sender: FDA-Public Use
  Company Number: US-009507513-1312USA005269

PATIENT
  Age: 21 Year
  Sex: Female
  Weight: 90.7 kg

DRUGS (2)
  1. IMPLANON [Suspect]
     Indication: CONTRACEPTION
     Dosage: UNK
     Route: 059
     Dates: start: 20131126
  2. IMPLANON [Suspect]
     Dosage: UNK
     Route: 059

REACTIONS (5)
  - Menorrhagia [Unknown]
  - Menstrual disorder [Unknown]
  - Amenorrhoea [Recovered/Resolved]
  - Menorrhagia [Not Recovered/Not Resolved]
  - Dysmenorrhoea [Not Recovered/Not Resolved]
